FAERS Safety Report 8847351 (Version 1)
Quarter: 2012Q4

REPORT INFORMATION
  Report Type: 
  Country: AT (occurrence: AT)
  Receive Date: 20121018
  Receipt Date: 20121018
  Transmission Date: 20130627
  Serious: Yes (Hospitalization, Other)
  Sender: FDA-Public Use
  Company Number: PHHY2012AT091645

PATIENT
  Age: 54 Year
  Sex: Male

DRUGS (8)
  1. ENTACAPONE [Suspect]
     Dosage: 200 mg, Daily
     Route: 048
     Dates: start: 200811
  2. CLOZAPINE [Suspect]
     Dosage: 37.5 mg, daily
     Dates: end: 200805
  3. PRAMIPEXOLE [Suspect]
     Dosage: tapering off
  4. SELEGILINE [Suspect]
  5. LEVODOPA [Suspect]
     Dosage: UNK UKN, UNK
     Dates: start: 200804
  6. LEVODOPA [Suspect]
     Dosage: Dose increased
  7. ROTIGOTINE [Suspect]
  8. APOMORPHINE [Concomitant]
     Dosage: 90 mg, daily
     Dates: start: 200710

REACTIONS (12)
  - Motor dysfunction [Unknown]
  - Dyskinesia [Unknown]
  - Suicide attempt [Unknown]
  - Cerebral atrophy [Unknown]
  - Akinesia [Unknown]
  - Chorea [Unknown]
  - Depression [Unknown]
  - Sleep disorder [Unknown]
  - Paranoia [Unknown]
  - On and off phenomenon [Unknown]
  - Muscle rigidity [Unknown]
  - Hallucination, visual [Unknown]
